FAERS Safety Report 25605758 (Version 1)
Quarter: 2025Q3

REPORT INFORMATION
  Report Type: Spontaneous
  Country: US (occurrence: US)
  Receive Date: 20250725
  Receipt Date: 20250725
  Transmission Date: 20251021
  Serious: No
  Sender: SANOFI AVENTIS
  Company Number: US-SA-2025SA010377

PATIENT
  Sex: Male

DRUGS (10)
  1. DUPIXENT [Suspect]
     Active Substance: DUPILUMAB
     Indication: Dermatitis atopic
     Dosage: 300 MG, QOW
     Route: 058
  2. LEVOTHYROXINE [Concomitant]
     Active Substance: LEVOTHYROXINE
  3. GEMTESA [Concomitant]
     Active Substance: VIBEGRON
  4. METOPROLOL [Concomitant]
     Active Substance: METOPROLOL
  5. RAMIPRIL [Concomitant]
     Active Substance: RAMIPRIL
  6. CLOPIDOGREL [Concomitant]
     Active Substance: CLOPIDOGREL BISULFATE
  7. CICLOPIROX [Concomitant]
     Active Substance: CICLOPIROX
  8. FENOFIBRATE [Concomitant]
     Active Substance: FENOFIBRATE
  9. DUTASTERIDE [Concomitant]
     Active Substance: DUTASTERIDE
  10. ATORVASTATIN [Concomitant]
     Active Substance: ATORVASTATIN

REACTIONS (1)
  - Product dose omission in error [Unknown]
